FAERS Safety Report 8292896 (Version 2)
Quarter: 2013Q3

REPORT INFORMATION
  Report Type: Spontaneous
  Country: US (occurrence: US)
  Receive Date: 20111215
  Receipt Date: 20130821
  Transmission Date: 20140515
  Serious: Yes (Other)
  Sender: FDA-Public Use
  Company Number: US-ROCHE-793911

PATIENT
  Age: 32 Year
  Sex: Male
  Weight: 99.88 kg

DRUGS (2)
  1. ACCUTANE [Suspect]
     Indication: ACNE
     Route: 065
     Dates: start: 19940926, end: 19950301
  2. ACCUTANE [Suspect]
     Route: 065

REACTIONS (5)
  - Inflammatory bowel disease [Unknown]
  - Irritable bowel syndrome [Unknown]
  - Gallbladder disorder [Unknown]
  - Chest pain [Unknown]
  - Large intestine polyp [Unknown]
